FAERS Safety Report 10255425 (Version 1)
Quarter: 2014Q2

REPORT INFORMATION
  Report Type: Spontaneous
  Country: US (occurrence: US)
  Receive Date: 20140624
  Receipt Date: 20140624
  Transmission Date: 20141212
  Serious: No
  Sender: FDA-Public Use
  Company Number: US-BAYER-2014-094393

PATIENT
  Age: 83 Year
  Sex: Male
  Weight: 104.31 kg

DRUGS (4)
  1. ALEVE TABLET [Suspect]
     Indication: ARTHRITIS
     Dosage: 1 DF, BID
     Route: 048
     Dates: start: 2010, end: 20130422
  2. PLAVIX [Concomitant]
  3. HYDROCODONE [Concomitant]
  4. BAYER ASPIRIN SUGAR FREE LOW DOSE ENTERIC [Concomitant]

REACTIONS (1)
  - Incorrect drug administration duration [None]
